FAERS Safety Report 9146809 (Version 1)
Quarter: 2013Q1

REPORT INFORMATION
  Report Type: Spontaneous
  Country: LY (occurrence: None)
  Receive Date: 20130221
  Receipt Date: 20130221
  Transmission Date: 20140127
  Serious: Yes (Death)
  Sender: FDA-Public Use
  Company Number: MPS1-1000933

PATIENT
  Sex: Female
  Weight: 13 kg

DRUGS (1)
  1. ALDURAZYME (LARONIDASE) CONCENTRATE FOR SOLUTION FOR INFUSION [Suspect]
     Indication: MUCOPOLYSACCHARIDOSIS
     Dosage: UNK,  INTRAVENOUS?03/05/2009, DURATION UNK
     Route: 042
     Dates: start: 20090305

REACTIONS (3)
  - Pneumonia [None]
  - Adenoidal hypertrophy [None]
  - Asphyxia [None]
